FAERS Safety Report 21596473 (Version 4)
Quarter: 2024Q2

REPORT INFORMATION
  Report Type: Spontaneous
  Country: US (occurrence: US)
  Receive Date: 20221115
  Receipt Date: 20240412
  Transmission Date: 20240716
  Serious: No
  Sender: FDA-Public Use
  Company Number: US-DSJP-DSU-2022-140883AA

PATIENT
  Age: 54 Year
  Sex: Female

DRUGS (2)
  1. TURALIO [Suspect]
     Active Substance: PEXIDARTINIB HYDROCHLORIDE
     Indication: Giant cell tumour of tendon sheath
     Dosage: 200 MG, BID
     Route: 048
     Dates: start: 20211122
  2. TURALIO [Suspect]
     Active Substance: PEXIDARTINIB HYDROCHLORIDE
     Dosage: UNK, TOOK ONLY ONE CAPSULE IN EVENING (QD)
     Route: 048

REACTIONS (5)
  - Illness [Unknown]
  - Fatigue [Unknown]
  - Nausea [Unknown]
  - Intentional underdose [Unknown]
  - Disease progression [Unknown]

NARRATIVE: CASE EVENT DATE: 20231201
